FAERS Safety Report 23247698 (Version 1)
Quarter: 2023Q4

REPORT INFORMATION
  Report Type: Report from Study
  Country: IN (occurrence: IN)
  Receive Date: 20231130
  Receipt Date: 20231130
  Transmission Date: 20240109
  Serious: Yes (Other)
  Sender: FDA-Public Use
  Company Number: IN-002147023-NVSC2023IN251665

PATIENT
  Sex: Female
  Weight: 73.7 kg

DRUGS (14)
  1. CERTICAN [Suspect]
     Active Substance: EVEROLIMUS
     Indication: Product used for unknown indication
     Dosage: 0.5 MG, QD (1-0-0)
     Route: 048
  2. CERTICAN [Suspect]
     Active Substance: EVEROLIMUS
     Indication: Product used for unknown indication
     Dosage: 0.25 MG, QD (0-0-1)
     Route: 048
  3. PRAZOPRESS [Concomitant]
     Indication: Product used for unknown indication
     Dosage: 5 MG, QD (1-0-0)
     Route: 065
  4. PRAZOPRESS [Concomitant]
     Dosage: 10 MG, QD (0-0-1)
     Route: 065
  5. MYCOPHENOLATE MOFETIL [Concomitant]
     Active Substance: MYCOPHENOLATE MOFETIL
     Indication: Product used for unknown indication
     Dosage: 500 MG, BID (1-0-1)
     Route: 065
  6. TELMISARTAN [Concomitant]
     Active Substance: TELMISARTAN
     Indication: Product used for unknown indication
     Dosage: 40 MG, QD (1-0-0)
     Route: 065
  7. GABAPENTIN [Concomitant]
     Active Substance: GABAPENTIN
     Indication: Product used for unknown indication
     Dosage: 200 MG, QD (1-0-0)
     Route: 065
  8. PAN [Concomitant]
     Indication: Product used for unknown indication
     Dosage: 40 MG, QD  (1-0-0)
     Route: 065
  9. TORSEMIDE [Concomitant]
     Active Substance: TORSEMIDE
     Indication: Product used for unknown indication
     Dosage: 10 MG, BID (1-1-0)
     Route: 065
  10. OROFER-XT [Concomitant]
     Indication: Product used for unknown indication
     Dosage: UNK, QD (0-0-1)
     Route: 065
  11. PREDNISOLONE [Concomitant]
     Active Substance: PREDNISOLONE
     Indication: Product used for unknown indication
     Dosage: 10 MG, QD (1-0-0)
     Route: 065
  12. AUGMENTIN [Concomitant]
     Active Substance: AMOXICILLIN\CLAVULANATE POTASSIUM
     Indication: Product used for unknown indication
     Dosage: 625 MG, TID (1-1-1)
     Route: 065
  13. AUGMENTIN [Concomitant]
     Active Substance: AMOXICILLIN\CLAVULANATE POTASSIUM
     Dosage: 625 MG, QD (0-0-1)
     Route: 065
  14. CITRALKA [Concomitant]
     Indication: Product used for unknown indication
     Dosage: 10 ML, TID (1-1-1)
     Route: 065

REACTIONS (8)
  - Ascites [Unknown]
  - Wheezing [Unknown]
  - Swelling face [Unknown]
  - Kidney enlargement [Unknown]
  - Hypervolaemia [Unknown]
  - Blood pressure increased [Unknown]
  - Decreased appetite [Unknown]
  - Sleep disorder [Unknown]
